FAERS Safety Report 4694782-1 (Version None)
Quarter: 2005Q2

REPORT INFORMATION
  Report Type: 
  Country: None (occurrence: None)
  Receive Date: 20050620
  Receipt Date: 20050526
  Transmission Date: 20051028
  Serious: Yes (Death)
  Sender: FDA-Public Use
  Company Number: 200511533JP

PATIENT
  Age: 69 Year
  Sex: Male
  Weight: 75 kg

DRUGS (10)
  1. TAXOTERE [Suspect]
     Indication: LUNG NEOPLASM MALIGNANT
     Route: 041
     Dates: start: 20050325, end: 20050325
  2. RADIATION THERAPY [Suspect]
     Indication: LUNG ADENOCARCINOMA
     Dates: start: 20050324, end: 20050408
  3. DECADRON [Concomitant]
     Indication: PREMEDICATION
     Route: 041
     Dates: start: 20050325, end: 20050325
  4. KYTRIL [Concomitant]
     Indication: PREMEDICATION
     Route: 041
     Dates: start: 20050325, end: 20050325
  5. GASTER [Concomitant]
     Route: 048
     Dates: start: 20050324, end: 20050411
  6. MAGLAX [Concomitant]
     Route: 048
     Dates: start: 20050324, end: 20050411
  7. AMLODIN [Concomitant]
     Route: 048
     Dates: start: 20050325, end: 20050411
  8. LOXONIN [Concomitant]
     Route: 048
     Dates: start: 20050324, end: 20050411
  9. TAXOL [Concomitant]
     Indication: LUNG NEOPLASM MALIGNANT
     Dates: start: 20050217, end: 20050301
  10. CARBOPLATIN [Concomitant]
     Indication: LUNG NEOPLASM MALIGNANT
     Dates: start: 20050217, end: 20050301

REACTIONS (5)
  - INFECTION [None]
  - INTERSTITIAL LUNG DISEASE [None]
  - PLEURAL EFFUSION [None]
  - PO2 DECREASED [None]
  - RADIATION PNEUMONITIS [None]
